FAERS Safety Report 6643672-3 (Version None)
Quarter: 2010Q1

REPORT INFORMATION
  Report Type: 
  Country: None (occurrence: None)
  Receive Date: 20100321
  Receipt Date: 20100309
  Transmission Date: 20100710
  Serious: Yes (Hospitalization)
  Sender: FDA-Public Use
  Company Number: BE-BRISTOL-MYERS SQUIBB COMPANY-15009590

PATIENT
  Age: 47 Year
  Sex: Female
  Weight: 80 kg

DRUGS (5)
  1. ATAZANAVIR [Suspect]
     Indication: HIV INFECTION
  2. QUETIAPINE [Interacting]
     Dosage: 8000MG
  3. LAMIVUDINE [Interacting]
     Indication: HIV INFECTION
  4. RITONAVIR [Interacting]
     Indication: HIV INFECTION
  5. TENOFOVIR [Interacting]
     Indication: HIV INFECTION

REACTIONS (4)
  - COMA [None]
  - DRUG INTERACTION [None]
  - HYPOTENSION [None]
  - INTENTIONAL OVERDOSE [None]
